FAERS Safety Report 15490540 (Version 2)
Quarter: 2018Q4

REPORT INFORMATION
  Report Type: Report from Study
  Country: BR (occurrence: BR)
  Receive Date: 20181011
  Receipt Date: 20181026
  Transmission Date: 20190205
  Serious: Yes (Hospitalization, Other)
  Sender: FDA-Public Use
  Company Number: PHHY2016BR103092

PATIENT
  Age: 44 Year
  Sex: Male
  Weight: 93 kg

DRUGS (4)
  1. SANDOSTATIN LAR DEPOT [Suspect]
     Active Substance: OCTREOTIDE ACETATE
     Dosage: 20 MG, QMO
     Route: 030
     Dates: start: 2013, end: 2014
  2. CABERGOLINA [Concomitant]
     Active Substance: CABERGOLINE
     Indication: ACROMEGALY
     Dosage: UNK
     Route: 065
     Dates: start: 2011
  3. SANDOSTATIN LAR DEPOT [Suspect]
     Active Substance: OCTREOTIDE ACETATE
     Indication: ACROMEGALY
     Dosage: 30 MG, QMO
     Route: 030
     Dates: start: 2012
  4. SANDOSTATIN LAR DEPOT [Suspect]
     Active Substance: OCTREOTIDE ACETATE
     Dosage: 30 MG, QMO
     Route: 030
     Dates: start: 2014

REACTIONS (27)
  - Hormone level abnormal [Recovered/Resolved]
  - Dyspnoea [Recovered/Resolved]
  - Malaise [Recovered/Resolved]
  - Weight decreased [Unknown]
  - Laboratory test abnormal [Unknown]
  - Feeling abnormal [Unknown]
  - Paraesthesia [Not Recovered/Not Resolved]
  - Chest discomfort [Not Recovered/Not Resolved]
  - Pulmonary congestion [Not Recovered/Not Resolved]
  - Gastrooesophageal reflux disease [Unknown]
  - Dysstasia [Recovered/Resolved]
  - Fatigue [Not Recovered/Not Resolved]
  - Abdominal pain [Not Recovered/Not Resolved]
  - Oropharyngeal discomfort [Unknown]
  - Weight decreased [Recovered/Resolved]
  - Inappropriate schedule of product administration [Unknown]
  - General physical health deterioration [Not Recovered/Not Resolved]
  - Malaise [Recovered/Resolved]
  - Asthenia [Recovered/Resolved]
  - Malaise [Recovered/Resolved]
  - Agitation [Unknown]
  - Abdominal discomfort [Unknown]
  - Dyspnoea [Recovered/Resolved]
  - Peripheral coldness [Not Recovered/Not Resolved]
  - Body temperature increased [Not Recovered/Not Resolved]
  - Movement disorder [Not Recovered/Not Resolved]
  - Flatulence [Not Recovered/Not Resolved]

NARRATIVE: CASE EVENT DATE: 201803
